FAERS Safety Report 5634221-7 (Version None)
Quarter: 2008Q1

REPORT INFORMATION
  Report Type: 
  Country: None (occurrence: None)
  Receive Date: 20080220
  Receipt Date: 20080220
  Transmission Date: 20080703
  Serious: Yes (Life-Threatening)
  Sender: FDA-Public Use
  Company Number: None

PATIENT
  Age: 64 Year
  Sex: Male

DRUGS (1)
  1. ROSIGLITAZONE [Suspect]
     Indication: HYPERTENSION
     Dosage: 4MG EVERY DAY PO
     Route: 048
     Dates: start: 20070517, end: 20070615

REACTIONS (2)
  - ANGINA PECTORIS [None]
  - CARDIAC ENZYMES INCREASED [None]
